FAERS Safety Report 11990925 (Version 1)
Quarter: 2016Q1

REPORT INFORMATION
  Report Type: Spontaneous
  Country: US (occurrence: US)
  Receive Date: 20160202
  Receipt Date: 20160202
  Transmission Date: 20160526
  Serious: No
  Sender: FDA-Public Use
  Company Number: US-MISSION PHARMACAL COMPANY-1047235

PATIENT
  Age: 63 Year
  Sex: Female

DRUGS (1)
  1. BINOSTO [Suspect]
     Active Substance: ALENDRONATE SODIUM
     Indication: BONE DENSITY ABNORMAL
     Route: 065
     Dates: start: 20151211, end: 20160101

REACTIONS (2)
  - Oropharyngeal pain [Not Recovered/Not Resolved]
  - Drug dose omission [None]
